FAERS Safety Report 8590306-7 (Version None)
Quarter: 2012Q3

REPORT INFORMATION
  Report Type: 
  Country: None (occurrence: None)
  Receive Date: 20120813
  Receipt Date: 20120808
  Transmission Date: 20120928
  Serious: Yes (Hospitalization)
  Sender: FDA-Public Use
  Company Number: JP-GLAXOSMITHKLINE-B0816554A

PATIENT
  Sex: Male

DRUGS (17)
  1. LAMICTAL [Suspect]
     Dosage: 75MG PER DAY
     Route: 048
     Dates: start: 20120714, end: 20120715
  2. NITRAZEPAM [Concomitant]
     Indication: INSOMNIA
     Dosage: 10MG PER DAY
     Route: 048
     Dates: start: 20120623
  3. SEROQUEL [Concomitant]
     Route: 048
     Dates: end: 20120710
  4. ZYPREXA [Concomitant]
     Dosage: 10MG PER DAY
     Route: 048
     Dates: start: 20120704, end: 20120710
  5. LITHIUM CARBONATE [Concomitant]
     Dosage: 600MG PER DAY
     Route: 048
     Dates: start: 20120715, end: 20120720
  6. LAMICTAL [Suspect]
     Dosage: 25MG PER DAY
     Route: 048
     Dates: start: 20120616, end: 20120629
  7. LITHIUM CARBONATE [Concomitant]
     Dosage: 400MG PER DAY
     Route: 048
     Dates: start: 20120721
  8. LAMICTAL [Suspect]
     Dosage: 50MG PER DAY
     Route: 048
     Dates: start: 20120630, end: 20120713
  9. ZYPREXA [Concomitant]
     Dosage: 15MG PER DAY
     Route: 048
     Dates: start: 20120711, end: 20120717
  10. ZYPREXA [Concomitant]
     Dosage: 25MG PER DAY
     Route: 048
     Dates: start: 20120721
  11. SEROQUEL [Concomitant]
     Dosage: 75MG PER DAY
     Route: 048
     Dates: start: 20120711, end: 20120718
  12. LITHIUM CARBONATE [Concomitant]
     Indication: BIPOLAR I DISORDER
     Dosage: 600MG PER DAY
     Route: 048
     Dates: start: 20120620, end: 20120622
  13. LITHIUM CARBONATE [Concomitant]
     Dosage: 800MG PER DAY
     Route: 048
     Dates: start: 20120623, end: 20120714
  14. LAMICTAL [Suspect]
     Indication: MAJOR DEPRESSION
     Dosage: 12.5MG PER DAY
     Route: 048
     Dates: start: 20120615, end: 20120615
  15. FAMOTIDINE [Suspect]
     Indication: DYSPEPSIA
     Dosage: 20MG PER DAY
     Route: 048
     Dates: start: 20120715, end: 20120720
  16. ZYPREXA [Concomitant]
     Indication: BIPOLAR I DISORDER
     Dosage: 5MG PER DAY
     Route: 048
     Dates: start: 20120630, end: 20120703
  17. ZYPREXA [Concomitant]
     Dosage: 20MG PER DAY
     Route: 048
     Dates: start: 20120718, end: 20120720

REACTIONS (15)
  - DRUG ERUPTION [None]
  - MALAISE [None]
  - BLOOD CREATININE INCREASED [None]
  - PROTEIN TOTAL DECREASED [None]
  - BLOOD ALBUMIN DECREASED [None]
  - CYTOMEGALOVIRUS TEST POSITIVE [None]
  - ALANINE AMINOTRANSFERASE INCREASED [None]
  - HUMAN HERPES VIRUS 6 SEROLOGY POSITIVE [None]
  - PYREXIA [None]
  - NEUTROPHIL PERCENTAGE INCREASED [None]
  - ERYTHEMA [None]
  - RASH GENERALISED [None]
  - BLOOD LACTATE DEHYDROGENASE INCREASED [None]
  - EOSINOPHIL PERCENTAGE INCREASED [None]
  - C-REACTIVE PROTEIN INCREASED [None]
